FAERS Safety Report 14289967 (Version 1)
Quarter: 2017Q4

REPORT INFORMATION
  Report Type: Spontaneous
  Country: FR (occurrence: FR)
  Receive Date: 20171215
  Receipt Date: 20171215
  Transmission Date: 20180321
  Serious: Yes (Other)
  Sender: FDA-Public Use
  Company Number: FR-MYLANLABS-2017M1076751

PATIENT
  Age: 38 Year
  Sex: Female
  Weight: 78 kg

DRUGS (3)
  1. BUPIVACAINE MYLAN [Suspect]
     Active Substance: BUPIVACAINE
     Indication: CAESAREAN SECTION
     Dosage: 12 MG, UNK
     Route: 037
  2. SUFENTA [Suspect]
     Active Substance: SUFENTANIL CITRATE
     Indication: CAESAREAN SECTION
     Dosage: 2.2 G, UNK
     Route: 037
  3. MORPHINE [Suspect]
     Active Substance: MORPHINE
     Indication: CAESAREAN SECTION
     Dosage: 100 G, UNK
     Route: 037

REACTIONS (5)
  - Product use issue [Unknown]
  - No adverse event [Unknown]
  - Exposure during pregnancy [Unknown]
  - Off label use [Unknown]
  - Drug ineffective [Recovered/Resolved]

NARRATIVE: CASE EVENT DATE: 20170314
